FAERS Safety Report 12446201 (Version 1)
Quarter: 2016Q2

REPORT INFORMATION
  Report Type: Spontaneous
  Country: CO (occurrence: CO)
  Receive Date: 20160608
  Receipt Date: 20160608
  Transmission Date: 20160815
  Serious: Yes (Other)
  Sender: FDA-Public Use
  Company Number: CO-CIPLA LTD.-2016US06029

PATIENT

DRUGS (5)
  1. BEVACIZUMAB [Suspect]
     Active Substance: BEVACIZUMAB
     Indication: NON-SMALL CELL LUNG CANCER STAGE IV
     Dosage: 7.5 MG/KG, EVERY 3 WEEKS, INDUCTION THERAPY
     Route: 042
  2. CARBOPLATIN. [Suspect]
     Active Substance: CARBOPLATIN
     Indication: NON-SMALL CELL LUNG CANCER STAGE IV
     Dosage: AUC OF 5 MG/ML/MIN, EVERY THREE WEEKS UPTO FOUR CYCLES
     Route: 042
  3. PEMETREXED [Suspect]
     Active Substance: PEMETREXED
     Indication: NON-SMALL CELL LUNG CANCER STAGE IV
     Dosage: 500 MG/M2, EVERY 3 WEEKS, INDUCTION THERAPY
     Route: 042
  4. PEMETREXED [Suspect]
     Active Substance: PEMETREXED
     Dosage: 500 MG/M2, EVERY 3 WEEKS, MAINTAINANCE THERAPY
     Route: 042
  5. BEVACIZUMAB [Suspect]
     Active Substance: BEVACIZUMAB
     Dosage: 7.5 MG/KG, EVERY 3 WEEKS, MAINTAINANCE THERAPY
     Route: 042

REACTIONS (1)
  - Intestinal perforation [Unknown]
